FAERS Safety Report 6008085-6 (Version None)
Quarter: 2008Q4

REPORT INFORMATION
  Report Type: 
  Country: None (occurrence: None)
  Receive Date: 20081217
  Receipt Date: 20080911
  Transmission Date: 20090506
  Serious: No
  Sender: FDA-Public Use
  Company Number: US-ASTRAZENECA-2008UW16893

PATIENT
  Sex: Female

DRUGS (8)
  1. CRESTOR [Suspect]
     Indication: BLOOD CHOLESTEROL INCREASED
     Route: 048
     Dates: start: 20080201
  2. CRESTOR [Suspect]
     Indication: ATRIOVENTRICULAR BLOCK
     Route: 048
     Dates: start: 20080201
  3. CRESTOR [Suspect]
     Dosage: NEVER TOOK THIS DOSE
     Route: 048
  4. CRESTOR [Suspect]
     Dosage: NEVER TOOK THIS DOSE
     Route: 048
  5. SYNTHROID [Concomitant]
  6. VITAMIN K TAB [Concomitant]
  7. CALCIUM [Concomitant]
  8. LANTIS [Concomitant]

REACTIONS (1)
  - BLOOD GLUCOSE INCREASED [None]
